FAERS Safety Report 4383430-6 (Version None)
Quarter: 2004Q2

REPORT INFORMATION
  Report Type: 
  Country: None (occurrence: None)
  Receive Date: 20040618
  Receipt Date: 20040614
  Transmission Date: 20050107
  Serious: Yes (Other)
  Sender: FDA-Public Use
  Company Number: 200410240BYL

PATIENT
  Age: 74 Year
  Sex: Male

DRUGS (6)
  1. ASPIRIN [Suspect]
     Indication: AGE INDETERMINATE MYOCARDIAL INFARCTION
     Dosage: ORAL
     Route: 048
     Dates: start: 20030618, end: 20040220
  2. MUCOSTA (REBAMIPIDE) [Suspect]
     Dosage: ORAL
     Route: 048
     Dates: start: 20031029, end: 20040220
  3. ISOSORBIDE MONONITRATE [Concomitant]
  4. TERNELIN [Concomitant]
  5. OSTELUC [Concomitant]
  6. SPELEAR [Concomitant]

REACTIONS (2)
  - HEPATITIS CHOLESTATIC [None]
  - LYMPHOCYTE STIMULATION TEST POSITIVE [None]
